FAERS Safety Report 4312982-7 (Version None)
Quarter: 2004Q1

REPORT INFORMATION
  Report Type: 
  Country: None (occurrence: None)
  Receive Date: 20040224
  Receipt Date: 20040223
  Transmission Date: 20041129
  Serious: Yes (Hospitalization, Other)
  Sender: FDA-Public Use
  Company Number: HQ3414719JUL2002

PATIENT
  Age: 12 Year
  Sex: Male

DRUGS (2)
  1. BENEFIX [Suspect]
     Indication: FACTOR IX DEFICIENCY
     Dosage: 3960 IU ON DEMAND INTRAVENOUS
     Route: 042
     Dates: start: 20020716, end: 20020716
  2. BENEFIX [Suspect]
     Indication: FACTOR IX DEFICIENCY
     Dosage: 3960 IU ON DEMAND INTRAVENOUS
     Route: 042
     Dates: start: 20020717

REACTIONS (13)
  - AGITATION [None]
  - AMNESIA [None]
  - ANXIETY [None]
  - DIZZINESS [None]
  - DYSKINESIA [None]
  - EYE ROLLING [None]
  - HYPOGLYCAEMIA [None]
  - LOSS OF CONSCIOUSNESS [None]
  - MALAISE [None]
  - SKIN DISCOLOURATION [None]
  - SPEECH DISORDER [None]
  - SYNCOPE VASOVAGAL [None]
  - TREMOR [None]
